FAERS Safety Report 9351712 (Version 1)
Quarter: 2013Q2

REPORT INFORMATION
  Report Type: Report from Study
  Country: NL (occurrence: NL)
  Receive Date: 20130617
  Receipt Date: 20130617
  Transmission Date: 20140414
  Serious: Yes (Death, Life-Threatening)
  Sender: FDA-Public Use
  Company Number: NL-CELGENEUS-114-21880-13060720

PATIENT
  Age: 72 Year
  Sex: Female
  Weight: 63 kg

DRUGS (6)
  1. REVLIMID [Suspect]
     Indication: ACUTE MYELOID LEUKAEMIA
     Route: 048
     Dates: start: 20121025, end: 20121104
  2. CYTARABINE [Suspect]
     Indication: ACUTE MYELOID LEUKAEMIA
     Route: 041
     Dates: start: 20121025, end: 20121030
  3. BROXIL [Concomitant]
     Indication: PROPHYLAXIS
     Route: 048
     Dates: start: 20121030
  4. CIPROFLOXACINE [Concomitant]
     Indication: PROPHYLAXIS
     Route: 048
     Dates: start: 20121104
  5. AMPHOTERICIN B [Concomitant]
     Indication: PROPHYLAXIS
     Route: 048
     Dates: start: 20121104
  6. FLUCONAZOLE [Concomitant]
     Indication: PROPHYLAXIS
     Route: 048
     Dates: start: 20121104

REACTIONS (1)
  - Sepsis [Fatal]
